FAERS Safety Report 8155203-X (Version None)
Quarter: 2012Q1

REPORT INFORMATION
  Report Type: 
  Country: None (occurrence: None)
  Receive Date: 20120222
  Receipt Date: 20120213
  Transmission Date: 20120608
  Serious: Yes (Other)
  Sender: FDA-Public Use
  Company Number: US-BRISTOL-MYERS SQUIBB COMPANY-16396707

PATIENT
  Age: 75 Year
  Sex: Female

DRUGS (1)
  1. ORENCIA [Suspect]
     Indication: RHEUMATOID ARTHRITIS
     Dosage: LAST INFUSION ON 03FEB2012,OFF THE MEDICATION FOR TWO MONTHS RESTARTED BACK IN DEC2011
     Route: 042
     Dates: start: 20110501

REACTIONS (3)
  - NECK PAIN [None]
  - SPINAL DISORDER [None]
  - JOINT SWELLING [None]
